FAERS Safety Report 5669576-0 (Version None)
Quarter: 2008Q1

REPORT INFORMATION
  Report Type: 
  Country: None (occurrence: None)
  Receive Date: 20080317
  Receipt Date: 20080306
  Transmission Date: 20080703
  Serious: Yes (Other)
  Sender: FDA-Public Use
  Company Number: PHNU2008DE01258

PATIENT
  Sex: Female

DRUGS (4)
  1. RASILEZ [Suspect]
     Indication: HYPERTENSION
     Dosage: 300 MG/D
     Dates: start: 20080304, end: 20080305
  2. HYDROCHLOROTHIAZIDE [Concomitant]
  3. CARVEDILOL [Concomitant]
  4. RAMIPRIL [Concomitant]
     Dates: end: 20080303

REACTIONS (4)
  - ANGINA PECTORIS [None]
  - OEDEMA PERIPHERAL [None]
  - PALPITATIONS [None]
  - THROMBOPHLEBITIS [None]
